FAERS Safety Report 6718232-6 (Version None)
Quarter: 2010Q2

REPORT INFORMATION
  Report Type: 
  Country: None (occurrence: None)
  Receive Date: 20100504
  Receipt Date: 20100422
  Transmission Date: 20101027
  Serious: Yes (Other)
  Sender: FDA-Public Use
  Company Number: 7002409

PATIENT
  Age: 70 Year
  Sex: Female

DRUGS (1)
  1. REBIF [Suspect]
     Indication: DRUG USE FOR UNKNOWN INDICATION
     Dosage: 44 MCG, 3 IN 1 WK, SUBCUTANEOUS
     Route: 058
     Dates: start: 20071031

REACTIONS (7)
  - ANAEMIA [None]
  - HEADACHE [None]
  - MICTURITION URGENCY [None]
  - OEDEMA PERIPHERAL [None]
  - RETINAL DISORDER [None]
  - VISION BLURRED [None]
  - WEIGHT DECREASED [None]
